FAERS Safety Report 4517842-4 (Version None)
Quarter: 2004Q4

REPORT INFORMATION
  Report Type: 
  Country: None (occurrence: None)
  Receive Date: 20041203
  Receipt Date: 20041007
  Transmission Date: 20050328
  Serious: Yes (Life-Threatening, Hospitalization, Disabling)
  Sender: FDA-Public Use
  Company Number: US-MERCK-0410USA01160

PATIENT
  Sex: Female

DRUGS (2)
  1. VIOXX [Suspect]
     Indication: GENERAL SYMPTOM
     Route: 048
     Dates: start: 19990101
  2. PRILOSEC [Concomitant]
     Route: 065

REACTIONS (2)
  - RECTAL HAEMORRHAGE [None]
  - ULCER [None]
